FAERS Safety Report 7334859-5 (Version None)
Quarter: 2011Q1

REPORT INFORMATION
  Report Type: 
  Country: None (occurrence: None)
  Receive Date: 20110307
  Receipt Date: 20110209
  Transmission Date: 20110831
  Serious: No
  Sender: FDA-Public Use
  Company Number: US-B.I. PHARMACEUTICALS,INC./RIDGEFIELD-2011-BP-03915BP

PATIENT
  Age: 51 Year
  Sex: Female

DRUGS (1)
  1. SPIRIVA [Suspect]
     Indication: BRONCHIECTASIS
     Dosage: 36 MCG
     Route: 055
     Dates: start: 20101001

REACTIONS (1)
  - DYSPNOEA [None]
